FAERS Safety Report 24780775 (Version 1)
Quarter: 2024Q4

REPORT INFORMATION
  Report Type: Spontaneous
  Country: PL (occurrence: PL)
  Receive Date: 20241227
  Receipt Date: 20241227
  Transmission Date: 20250115
  Serious: Yes (Hospitalization, Other)
  Sender: BIOVITRUM
  Company Number: None

PATIENT
  Age: 2 Month
  Sex: Female
  Weight: 2.3 kg

DRUGS (5)
  1. SYNAGIS [Suspect]
     Active Substance: PALIVIZUMAB
     Indication: Immunisation
     Dosage: UNK UNK, Q2H
     Route: 030
     Dates: start: 20210224, end: 20210224
  2. CLONAZEPAM [Concomitant]
     Active Substance: CLONAZEPAM
     Indication: Seizure
     Route: 048
  3. VITAMIN D [Concomitant]
     Active Substance: VITAMIN D NOS
     Indication: Prophylaxis
     Dosage: THERAPY ONGOING
     Route: 065
  4. IRON [Concomitant]
     Active Substance: IRON
     Indication: Anaemia prophylaxis
     Dosage: THERAPY ONGOING
     Route: 048
  5. SILDENAFIL [Concomitant]
     Active Substance: SILDENAFIL
     Indication: Pulmonary hypertension
     Route: 048
     Dates: end: 20210401

REACTIONS (4)
  - Oxygen saturation decreased [Unknown]
  - Apnoea [Unknown]
  - Restlessness [Unknown]
  - Seizure [Unknown]

NARRATIVE: CASE EVENT DATE: 20210224
